FAERS Safety Report 10153949 (Version 2)
Quarter: 2014Q2

REPORT INFORMATION
  Report Type: Spontaneous
  Country: FR (occurrence: None)
  Receive Date: 20140502
  Receipt Date: 20140617
  Transmission Date: 20141212
  Serious: Yes (Hospitalization, Other)
  Sender: FDA-Public Use
  Company Number: 7285355

PATIENT
  Age: 20 Year
  Sex: Female

DRUGS (3)
  1. THYROZOL (THIAMAZOLE) (THIAMAZOLE) [Suspect]
     Indication: HYPERTHYROIDISM
     Dosage: 40 MG (40 MG, 1 IN  D), ORAL
     Route: 048
     Dates: start: 201310, end: 20140324
  2. THYROZOL (THIAMAZOLE) (THIAMAZOLE) [Suspect]
     Indication: BASEDOW^S DISEASE
     Dosage: 40 MG (40 MG, 1 IN  D), ORAL
     Route: 048
     Dates: start: 201310, end: 20140324
  3. LEVOTHYROX (LEVOTHYROXINE SODIUM) (LEVOTHYROXINE SODIUM) [Suspect]
     Indication: PRODUCT USED FOR UNKNOWN INDICATION
     Route: 048
     Dates: start: 201310, end: 20130324

REACTIONS (11)
  - Agranulocytosis [None]
  - Thrombocytopenia [None]
  - Pyrexia [None]
  - Peripheral coldness [None]
  - Tonsillar disorder [None]
  - Erythema [None]
  - Cough [None]
  - Culture throat positive [None]
  - Bacterial infection [None]
  - Bicytopenia [None]
  - Aplastic anaemia [None]
